FAERS Safety Report 6231129-3 (Version None)
Quarter: 2009Q2

REPORT INFORMATION
  Report Type: 
  Country: None (occurrence: None)
  Receive Date: 20090616
  Receipt Date: 20090602
  Transmission Date: 20091009
  Serious: Yes (Other)
  Sender: FDA-Public Use
  Company Number: US-BIOGENIDEC-192003

PATIENT
  Age: 45 Year
  Sex: Female
  Weight: 96 kg

DRUGS (7)
  1. AVONEX [Suspect]
     Indication: MULTIPLE SCLEROSIS
     Route: 030
     Dates: start: 19980301, end: 20011228
  2. TYLOX [Concomitant]
     Indication: PAIN
  3. SOMA [Concomitant]
     Indication: MUSCLE SPASMS
  4. KLONOPIN [Concomitant]
     Indication: INSOMNIA
     Dates: start: 20010101
  5. DOXEPIN [Concomitant]
     Indication: DEPRESSION
  6. ZOMIG [Concomitant]
     Indication: MIGRAINE
     Dates: end: 20030101
  7. MAXALT [Concomitant]
     Indication: MIGRAINE
     Dates: start: 20030101

REACTIONS (11)
  - CONVULSION [None]
  - DIARRHOEA [None]
  - HEADACHE [None]
  - HYPERTENSION [None]
  - INFLUENZA LIKE ILLNESS [None]
  - MIGRAINE [None]
  - MULTIPLE SCLEROSIS [None]
  - POLLAKIURIA [None]
  - URINARY RETENTION [None]
  - URINARY TRACT INFECTION [None]
  - VOMITING [None]
